FAERS Safety Report 9370575 (Version 2)
Quarter: 2013Q3

REPORT INFORMATION
  Report Type: Report from Study
  Country: US (occurrence: US)
  Receive Date: 20130626
  Receipt Date: 20130927
  Transmission Date: 20140515
  Serious: Yes (Hospitalization, Other)
  Sender: FDA-Public Use
  Company Number: US-ELI_LILLY_AND_COMPANY-US201306004619

PATIENT
  Age: 72 Year
  Sex: Female

DRUGS (9)
  1. TERIPARATIDE [Suspect]
     Indication: OSTEOPOROSIS PROPHYLAXIS
     Dosage: UNK
     Dates: start: 20121017, end: 20130319
  2. SYNTHROID [Suspect]
  3. SPIRONOLACTONE [Suspect]
  4. CARVEDILOL [Suspect]
  5. GABAPENTIN [Suspect]
  6. AVAPRO [Concomitant]
  7. CRESTOR [Concomitant]
  8. PANTOPRAZOLE [Concomitant]
  9. BABY ASPIRIN [Concomitant]

REACTIONS (3)
  - Myocardial infarction [Recovering/Resolving]
  - Atrioventricular block complete [Unknown]
  - Alopecia [Recovered/Resolved]
